FAERS Safety Report 4492646-X (Version None)
Quarter: 2004Q4

REPORT INFORMATION
  Report Type: 
  Country: None (occurrence: None)
  Receive Date: 20041104
  Receipt Date: 20041104
  Transmission Date: 20050328
  Serious: No
  Sender: FDA-Public Use
  Company Number: None

PATIENT
  Sex: Female

DRUGS (3)
  1. LIDOCAINE AND PRILOCAINE [Suspect]
     Dosage: TOPICAL  4:00  PM
     Route: 061
     Dates: start: 20040527
  2. LIDOCAINE AND PRILOCAINE [Suspect]
     Dosage: TOPICAL  8:00 AM
     Route: 061
     Dates: start: 20040607
  3. SILVER SULFADINE [Concomitant]

REACTIONS (2)
  - APPLICATION SITE REACTION [None]
  - THERMAL BURN [None]
